FAERS Safety Report 5446007-7 (Version None)
Quarter: 2007Q3

REPORT INFORMATION
  Report Type: 
  Country: None (occurrence: None)
  Receive Date: 20070907
  Receipt Date: 20070830
  Transmission Date: 20080115
  Serious: Yes (Disabling)
  Sender: FDA-Public Use
  Company Number: BR-ASTRAZENECA-2007UW20817

PATIENT
  Age: 297 Month
  Sex: Male
  Weight: 80 kg

DRUGS (1)
  1. HALOTANE [Suspect]
     Indication: ANAESTHESIA
     Route: 055
     Dates: start: 19890101

REACTIONS (1)
  - ERYTHEMA MULTIFORME [None]
